FAERS Safety Report 8043083-2 (Version None)
Quarter: 2012Q1

REPORT INFORMATION
  Report Type: 
  Country: None (occurrence: None)
  Receive Date: 20120112
  Receipt Date: 20120104
  Transmission Date: 20120608
  Serious: Yes (Hospitalization, Other)
  Sender: FDA-Public Use
  Company Number: US-ASTRAZENECA-2011SE64379

PATIENT
  Age: 71 Year
  Sex: Female
  Weight: 91.6 kg

DRUGS (12)
  1. ZOCOR [Concomitant]
  2. NOVOLOG [Concomitant]
  3. NEXIUM [Suspect]
     Indication: GASTROOESOPHAGEAL REFLUX DISEASE
     Route: 048
     Dates: start: 20090604, end: 20111203
  4. XOPENEX [Concomitant]
  5. CELEXA [Concomitant]
  6. SODIUM MEDROL [Concomitant]
  7. CARDURA [Concomitant]
  8. MUCOMYST [Concomitant]
  9. VERAPAMIL [Concomitant]
  10. ALVESCO [Concomitant]
  11. BROVANA [Concomitant]
  12. ACTONEL [Concomitant]

REACTIONS (5)
  - PRODUCTIVE COUGH [None]
  - CHRONIC OBSTRUCTIVE PULMONARY DISEASE [None]
  - EMPHYSEMA [None]
  - RESPIRATORY DISORDER [None]
  - ASTHMA [None]
